FAERS Safety Report 26196420 (Version 1)
Quarter: 2025Q4

REPORT INFORMATION
  Report Type: Spontaneous
  Country: US (occurrence: US)
  Receive Date: 20251224
  Receipt Date: 20251224
  Transmission Date: 20260118
  Serious: Yes (Other)
  Sender: BIOVITRUM
  Company Number: US-BIOVITRUM-2025-US-017786

PATIENT
  Age: 59 Year
  Sex: Male

DRUGS (1)
  1. DOPTELET [Suspect]
     Active Substance: AVATROMBOPAG MALEATE
     Indication: Liver disorder
     Dosage: TAKE 3 TABLETS ONCE DAILY FOR 5 DAYS
     Route: 048

REACTIONS (1)
  - Platelet count decreased [Unknown]
